FAERS Safety Report 8501129 (Version 3)
Quarter: 2013Q1

REPORT INFORMATION
  Report Type: Spontaneous
  Country: FR (occurrence: FR)
  Receive Date: 20120410
  Receipt Date: 20130201
  Transmission Date: 20140127
  Serious: Yes (Other)
  Sender: FDA-Public Use
  Company Number: FR-B.I. PHARMACEUTICALS,INC./RIDGEFIELD-2012-FF-00426FF

PATIENT
  Age: 52 Year
  Sex: Male

DRUGS (9)
  1. CATAPRESSAN [Suspect]
     Indication: HYPERTENSION
     Route: 042
     Dates: start: 20120110, end: 20120114
  2. PERFALGAN [Concomitant]
     Dosage: 4 G
     Route: 042
     Dates: start: 20120110, end: 20120114
  3. PROFENID [Concomitant]
     Dosage: 300 MG
     Route: 042
     Dates: start: 20120111, end: 20120111
  4. EUPANTOL [Concomitant]
     Dosage: 40 MG
     Route: 048
     Dates: start: 20120110, end: 20120112
  5. CHIROCAINE [Concomitant]
     Route: 042
     Dates: start: 20120110, end: 20120114
  6. SUFENTA [Concomitant]
     Route: 042
     Dates: start: 20120110, end: 20120114
  7. LOVENOX [Concomitant]
     Route: 058
     Dates: start: 201201
  8. DAFALGAN [Concomitant]
     Route: 048
     Dates: start: 20120115
  9. ACUPAN [Concomitant]
     Route: 042
     Dates: start: 201201, end: 201201

REACTIONS (2)
  - Rash maculo-papular [Unknown]
  - Skin exfoliation [Unknown]
